FAERS Safety Report 7865676-5 (Version None)
Quarter: 2011Q4

REPORT INFORMATION
  Report Type: 
  Country: None (occurrence: None)
  Receive Date: 20111028
  Receipt Date: 20110204
  Transmission Date: 20120403
  Serious: No
  Sender: FDA-Public Use
  Company Number: US-GLAXOSMITHKLINE-A0911975A

PATIENT
  Age: 50 Year
  Sex: Female

DRUGS (12)
  1. PROAIR HFA [Concomitant]
  2. ALLEGRA [Concomitant]
  3. FLEXERIL [Concomitant]
  4. DESIPRAMIDE HCL [Concomitant]
  5. OXYCODONE HCL [Concomitant]
  6. ADVAIR DISKUS 100/50 [Suspect]
     Indication: CHRONIC OBSTRUCTIVE PULMONARY DISEASE
     Route: 055
  7. ATENOLOL [Concomitant]
  8. LYRICA [Concomitant]
  9. FLECTOR [Concomitant]
  10. HYDROCHLOROTHIAZIDE [Concomitant]
  11. SINGULAIR [Concomitant]
  12. NEXIUM [Concomitant]

REACTIONS (3)
  - ILL-DEFINED DISORDER [None]
  - PRODUCT QUALITY ISSUE [None]
  - DRUG INEFFECTIVE [None]
